FAERS Safety Report 5581161-8 (Version None)
Quarter: 2008Q1

REPORT INFORMATION
  Report Type: 
  Country: None (occurrence: None)
  Receive Date: 20080103
  Receipt Date: 20071220
  Transmission Date: 20080703
  Serious: Yes (Hospitalization)
  Sender: FDA-Public Use
  Company Number: JP-ELI_LILLY_AND_COMPANY-JP200709006982

PATIENT
  Sex: Male
  Weight: 89.7 kg

DRUGS (6)
  1. ZYPREXA [Suspect]
     Indication: SCHIZOPHRENIA
     Dosage: 5 MG, DAILY (1/D)
     Route: 048
     Dates: start: 20040101, end: 20070801
  2. RISPERIDONE [Concomitant]
     Indication: SCHIZOPHRENIA
     Dosage: 3 MG, DAILY (1/D)
     Route: 048
     Dates: start: 20040101
  3. BIPERIDEN HYDROCHLORIDE TAB [Concomitant]
     Indication: SCHIZOPHRENIA
     Dosage: 3 MG, DAILY (1/D)
     Route: 048
     Dates: start: 20040101
  4. SHINPRAL [Concomitant]
     Indication: SCHIZOPHRENIA
     Dosage: 10 MG, 3/D
     Route: 048
     Dates: start: 20040101, end: 20070801
  5. ETIZOLAM [Concomitant]
     Indication: SCHIZOPHRENIA
     Dosage: 1 MG, DAILY (1/D)
     Route: 048
     Dates: start: 20040101, end: 20070801
  6. ETIZOLAM [Concomitant]
     Dosage: 1.5 MG, DAILY (1/D)
     Route: 048
     Dates: start: 20070801

REACTIONS (10)
  - ALANINE AMINOTRANSFERASE INCREASED [None]
  - ASPARTATE AMINOTRANSFERASE INCREASED [None]
  - BLOOD ALKALINE PHOSPHATASE INCREASED [None]
  - BLOOD CREATINE PHOSPHOKINASE INCREASED [None]
  - GAMMA-GLUTAMYLTRANSFERASE INCREASED [None]
  - GUILLAIN-BARRE SYNDROME [None]
  - HYPERTENSION [None]
  - LIVER DISORDER [None]
  - PARKINSONISM [None]
  - WEIGHT INCREASED [None]
